FAERS Safety Report 21269284 (Version 2)
Quarter: 2022Q4

REPORT INFORMATION
  Report Type: Spontaneous
  Country: TW (occurrence: TW)
  Receive Date: 20220830
  Receipt Date: 20221110
  Transmission Date: 20230113
  Serious: Yes (Hospitalization)
  Sender: FDA-Public Use
  Company Number: TW-JNJFOC-20220852286

PATIENT
  Age: 29 Year
  Sex: Female
  Weight: 69.4 kg

DRUGS (7)
  1. SIMPONI [Suspect]
     Active Substance: GOLIMUMAB
     Indication: Ankylosing spondylitis
     Route: 058
     Dates: start: 20220107, end: 20220805
  2. ETORICOXIB [Concomitant]
     Active Substance: ETORICOXIB
     Indication: Rheumatoid arthritis
     Dates: start: 20220211
  3. NEURONTIN [Concomitant]
     Active Substance: GABAPENTIN
     Dosage: 300
     Dates: start: 20210423
  4. CHLORZOXAZONE [Concomitant]
     Active Substance: CHLORZOXAZONE
     Dosage: 250
     Dates: start: 20220506
  5. LYRICA [Concomitant]
     Active Substance: PREGABALIN
     Dosage: 1 TAB/HS
     Dates: start: 20220527
  6. TRAMADOL HYDROCHLORIDE [Concomitant]
     Active Substance: TRAMADOL HYDROCHLORIDE
     Dates: start: 20220708
  7. STROCAIN [OXETACAINE] [Concomitant]
     Dates: start: 20210716

REACTIONS (2)
  - Cellulitis [Recovered/Resolved]
  - Fasciitis [Recovered/Resolved]

NARRATIVE: CASE EVENT DATE: 20220819
